FAERS Safety Report 4602545-8 (Version None)
Quarter: 2005Q1

REPORT INFORMATION
  Report Type: 
  Country: None (occurrence: None)
  Receive Date: 20050309
  Receipt Date: 20050228
  Transmission Date: 20050727
  Serious: Yes (Other)
  Sender: FDA-Public Use
  Company Number: PHFR2005GB01059

PATIENT
  Age: 90 Year
  Sex: Female

DRUGS (2)
  1. FAMCICLOVIR [Suspect]
     Indication: HERPES ZOSTER
     Dosage: 750MG/DAY
     Route: 048
     Dates: start: 20050201, end: 20050203
  2. DIGOXIN [Concomitant]
     Indication: ATRIAL FIBRILLATION
     Dosage: SELF ADMINISTERED

REACTIONS (9)
  - AGEUSIA [None]
  - ANOSMIA [None]
  - DEAFNESS [None]
  - HALLUCINATION [None]
  - HEART RATE IRREGULAR [None]
  - INSOMNIA [None]
  - RENAL PAIN [None]
  - URINE OUTPUT DECREASED [None]
  - VISUAL ACUITY REDUCED [None]
